FAERS Safety Report 24760982 (Version 1)
Quarter: 2024Q4

REPORT INFORMATION
  Report Type: Spontaneous
  Country: US (occurrence: US)
  Receive Date: 20241220
  Receipt Date: 20241220
  Transmission Date: 20250114
  Serious: No
  Sender: SANOFI AVENTIS
  Company Number: US-SA-2024SA372057

PATIENT
  Sex: Male

DRUGS (1)
  1. DUPIXENT [Suspect]
     Active Substance: DUPILUMAB
     Indication: Dermatitis allergic
     Dosage: 200.000MG QM
     Route: 058
     Dates: start: 202212

REACTIONS (3)
  - Eczema [Unknown]
  - Arthralgia [Recovered/Resolved]
  - Product dose omission issue [Unknown]
